FAERS Safety Report 6768754-7 (Version None)
Quarter: 2010Q2

REPORT INFORMATION
  Report Type: 
  Country: None (occurrence: None)
  Receive Date: 20100614
  Receipt Date: 20100604
  Transmission Date: 20101027
  Serious: Yes (Hospitalization)
  Sender: FDA-Public Use
  Company Number: TR-ABBOTT-10P-161-0648579-00

PATIENT
  Sex: Female
  Weight: 33 kg

DRUGS (1)
  1. LUCRIN FOR INJECTION 3.75 MG [Suspect]
     Indication: PRECOCIOUS PUBERTY
     Route: 042
     Dates: start: 20100101, end: 20100423

REACTIONS (3)
  - HYPERSENSITIVITY [None]
  - LOSS OF CONSCIOUSNESS [None]
  - RASH [None]
